FAERS Safety Report 4374084-3 (Version None)
Quarter: 2004Q2

REPORT INFORMATION
  Report Type: 
  Country: None (occurrence: None)
  Receive Date: 20040602
  Receipt Date: 20040216
  Transmission Date: 20050107
  Serious: Yes (Hospitalization)
  Sender: FDA-Public Use
  Company Number: 1538

PATIENT
  Age: 15 Year
  Sex: Female

DRUGS (1)
  1. AVINZA [Suspect]
     Dates: start: 20040201, end: 20040201

REACTIONS (1)
  - OVERDOSE [None]
